FAERS Safety Report 25258482 (Version 1)
Quarter: 2025Q2

REPORT INFORMATION
  Report Type: Spontaneous
  Country: IL (occurrence: IL)
  Receive Date: 20250501
  Receipt Date: 20250501
  Transmission Date: 20250716
  Serious: Yes (Hospitalization, Other)
  Sender: AMGEN
  Company Number: IL-AMGEN-ISRSP2025082523

PATIENT
  Age: 77 Year
  Sex: Male

DRUGS (2)
  1. KYPROLIS [Suspect]
     Active Substance: CARFILZOMIB
     Indication: Plasma cell myeloma
     Route: 065
     Dates: start: 202503
  2. KYPROLIS [Suspect]
     Active Substance: CARFILZOMIB
     Route: 065
     Dates: start: 2025

REACTIONS (2)
  - Kidney infection [Not Recovered/Not Resolved]
  - Dyspnoea [Not Recovered/Not Resolved]

NARRATIVE: CASE EVENT DATE: 20250401
